FAERS Safety Report 19738121 (Version 1)
Quarter: 2021Q3

REPORT INFORMATION
  Report Type: Spontaneous
  Country: FR (occurrence: FR)
  Receive Date: 20210823
  Receipt Date: 20210823
  Transmission Date: 20211014
  Serious: Yes (Life-Threatening, Hospitalization, Other)
  Sender: FDA-Public Use
  Company Number: FR-PURDUE-USA-2021-0282332

PATIENT
  Age: 37 Year
  Sex: Male

DRUGS (3)
  1. NON?PMN BUPRENORPHINE [Suspect]
     Active Substance: BUPRENORPHINE
     Indication: PRODUCT SUBSTITUTION
     Dosage: 8 MG, DAILY
     Route: 065
  2. HEROIN [Suspect]
     Active Substance: DIAMORPHINE
     Indication: DRUG DEPENDENCE
     Dosage: UNK UNK, WEEKLY
     Route: 045
  3. CANNABIS [Suspect]
     Active Substance: CANNABIS SATIVA SUBSP. INDICA TOP
     Indication: PRODUCT USED FOR UNKNOWN INDICATION
     Dosage: REGULARLY
     Route: 065

REACTIONS (3)
  - Rebound psychosis [Recovered/Resolved]
  - Anxiety [Recovered/Resolved]
  - Suicide attempt [Recovered/Resolved]
